FAERS Safety Report 5963887-7 (Version None)
Quarter: 2008Q4

REPORT INFORMATION
  Report Type: 
  Country: None (occurrence: None)
  Receive Date: 20081124
  Receipt Date: 20081111
  Transmission Date: 20090506
  Serious: Yes (Hospitalization, Disabling)
  Sender: FDA-Public Use
  Company Number: IE-ROCHE-558647

PATIENT
  Sex: Male

DRUGS (2)
  1. ROACCUTANE [Suspect]
     Indication: ACNE
     Route: 048
     Dates: start: 20080201, end: 20080309
  2. ERYTHROMYCIN [Concomitant]
     Route: 048
     Dates: start: 20080101, end: 20080101

REACTIONS (3)
  - BRAIN INJURY [None]
  - CONVULSION [None]
  - INTRACRANIAL PRESSURE INCREASED [None]
